FAERS Safety Report 19519810 (Version 2)
Quarter: 2021Q3

REPORT INFORMATION
  Report Type: Spontaneous
  Country: SE (occurrence: SE)
  Receive Date: 20210712
  Receipt Date: 20210729
  Transmission Date: 20211014
  Serious: Yes (Life-Threatening)
  Sender: FDA-Public Use
  Company Number: SE-TEVA-2021-SE-1931320

PATIENT
  Sex: Female

DRUGS (1)
  1. VENLAFAXINE [Suspect]
     Active Substance: VENLAFAXINE HYDROCHLORIDE
     Indication: ANTIDEPRESSANT THERAPY
     Dosage: INGESTED EXCESSIVE AMOUNTS (EXACT DOSAGE NOT STATED)
     Route: 048

REACTIONS (2)
  - Cardiogenic shock [Unknown]
  - Stress cardiomyopathy [Unknown]
